FAERS Safety Report 13088980 (Version 1)
Quarter: 2017Q1

REPORT INFORMATION
  Report Type: Spontaneous
  Country: US (occurrence: US)
  Receive Date: 20170104
  Receipt Date: 20170104
  Transmission Date: 20170428
  Serious: Yes (Hospitalization)
  Sender: FDA-Public Use
  Company Number: None

PATIENT
  Age: 60 Year
  Sex: Female
  Weight: 64 kg

DRUGS (1)
  1. PERTUZUMAB [Suspect]
     Active Substance: PERTUZUMAB
     Dosage: 420 MG Q 21 DAYS INTRAVENOUS
     Route: 042
     Dates: start: 20160606, end: 20160627

REACTIONS (9)
  - Diarrhoea [None]
  - Fatigue [None]
  - Asthenia [None]
  - Stomatitis [None]
  - Toxicity to various agents [None]
  - Oral discomfort [None]
  - Drug tolerance decreased [None]
  - Hypophagia [None]
  - Erythema [None]

NARRATIVE: CASE EVENT DATE: 20160705
